FAERS Safety Report 9920056 (Version 1)
Quarter: 2014Q1

REPORT INFORMATION
  Report Type: Spontaneous
  Country: US (occurrence: US)
  Receive Date: 20140224
  Receipt Date: 20140224
  Transmission Date: 20141002
  Serious: Yes (Other)
  Sender: FDA-Public Use
  Company Number: US-BANPHARM-20142179

PATIENT
  Age: 8 Year
  Sex: Male

DRUGS (3)
  1. CETIRIZINE UNKNOWN PRODUCT [Suspect]
     Indication: URTICARIA
     Dosage: 10 MG, BID; 5 MG, X1,
     Route: 048
  2. FEXOFENADINE [Suspect]
     Indication: SEASONAL ALLERGY
     Dosage: 180 MG, QD,
  3. DIPHENHYDRAMINE [Suspect]
     Indication: URTICARIA
     Dosage: 25MG, QD; 12.5MG, X1; 25MG X1;

REACTIONS (2)
  - Urticaria [Recovered/Resolved]
  - Activities of daily living impaired [Recovered/Resolved]
